FAERS Safety Report 7646724-4 (Version None)
Quarter: 2011Q3

REPORT INFORMATION
  Report Type: 
  Country: None (occurrence: None)
  Receive Date: 20110801
  Receipt Date: 20110525
  Transmission Date: 20111222
  Serious: Yes (Other)
  Sender: FDA-Public Use
  Company Number: NL-ROXANE LABORATORIES, INC.-2011-DE-03298GD

PATIENT
  Age: 43 Year
  Sex: Male

DRUGS (7)
  1. OCTREOTIDE ACETATE [Suspect]
     Indication: ERDHEIM-CHESTER DISEASE
  2. CYCLOSPORINE [Suspect]
     Indication: ERDHEIM-CHESTER DISEASE
  3. CYCLOPHOSPHAMIDE [Suspect]
     Indication: ERDHEIM-CHESTER DISEASE
  4. POLYGAM S/D [Suspect]
     Indication: ERDHEIM-CHESTER DISEASE
  5. PREDNISONE TAB [Suspect]
     Indication: ERDHEIM-CHESTER DISEASE
     Dosage: 0.5 - 1 MG/KG, TAPERED TO 10 MG OR LESS IN CASE OF RESOLUTION OF INFLAMMATORY SIGNS
     Route: 048
  6. AZATHIOPRIN [Suspect]
     Indication: ERDHEIM-CHESTER DISEASE
     Dosage: 1-2 MG/KG, THEN TAPERED TO THE LOWEST EFFECTIVE DOSE
  7. ETANERCEPT [Suspect]
     Indication: ERDHEIM-CHESTER DISEASE

REACTIONS (1)
  - HERPES VIRUS INFECTION [None]
